FAERS Safety Report 22246839 (Version 2)
Quarter: 2023Q2

REPORT INFORMATION
  Report Type: Spontaneous
  Country: US (occurrence: US)
  Receive Date: 20230424
  Receipt Date: 20230602
  Transmission Date: 20230721
  Serious: Yes (Death, Life-Threatening, Hospitalization, Other)
  Sender: FDA-Public Use
  Company Number: US-HORIZON THERAPEUTICS-HZN-2023-003017

PATIENT

DRUGS (4)
  1. PREDNISONE [Suspect]
     Active Substance: PREDNISONE
     Indication: Sarcoidosis
     Dosage: TAPERING DOSES
     Route: 048
  2. METHYLPREDNISOLONE [Suspect]
     Active Substance: METHYLPREDNISOLONE
     Indication: Sarcoidosis
     Dosage: UNK
     Route: 042
  3. AMOXICILLIN [Concomitant]
     Active Substance: AMOXICILLIN
     Indication: Sarcoidosis
  4. CLAVULANATE POTASSIUM [Concomitant]
     Active Substance: CLAVULANATE POTASSIUM
     Indication: Sarcoidosis

REACTIONS (2)
  - Disseminated mycobacterium avium complex infection [Fatal]
  - Condition aggravated [Fatal]
